FAERS Safety Report 20640367 (Version 1)
Quarter: 2022Q1

REPORT INFORMATION
  Report Type: Spontaneous
  Country: US (occurrence: US)
  Receive Date: 20220327
  Receipt Date: 20220327
  Transmission Date: 20220424
  Serious: No
  Sender: FDA-Public Use
  Company Number: US-SA-SAC20220317000156

PATIENT
  Age: 61 Year
  Sex: Male

DRUGS (4)
  1. DUPIXENT [Suspect]
     Active Substance: DUPILUMAB
     Indication: Asthma
     Dosage: 300 MG EVERY OTHER WEEK
     Route: 058
     Dates: start: 20211104
  2. FLOVENT HFA [Concomitant]
     Active Substance: FLUTICASONE PROPIONATE
  3. PREDNISONE [Concomitant]
     Active Substance: PREDNISONE
     Dosage: 5MG
  4. ZOLPIDEM [Concomitant]
     Active Substance: ZOLPIDEM TARTRATE
     Dosage: 10MG

REACTIONS (1)
  - Asthma [Unknown]
